FAERS Safety Report 6456173-2 (Version None)
Quarter: 2009Q4

REPORT INFORMATION
  Report Type: 
  Country: None (occurrence: None)
  Receive Date: 20091125
  Receipt Date: 20091116
  Transmission Date: 20100525
  Serious: Yes (Other)
  Sender: FDA-Public Use
  Company Number: US-PFIZER INC-2009299100

PATIENT

DRUGS (1)
  1. VFEND [Suspect]

REACTIONS (5)
  - ERYTHEMA [None]
  - PHOTOSENSITIVITY REACTION [None]
  - PRECANCEROUS SKIN LESION [None]
  - RASH [None]
  - RASH GENERALISED [None]
